FAERS Safety Report 18274643 (Version 1)
Quarter: 2020Q3

REPORT INFORMATION
  Report Type: Spontaneous
  Country: US (occurrence: US)
  Receive Date: 20200916
  Receipt Date: 20200916
  Transmission Date: 20201103
  Serious: Yes (Death, Hospitalization, Other)
  Sender: FDA-Public Use
  Company Number: US-PURDUE-USA-2020-0166340

PATIENT
  Age: 42 Year
  Sex: Male

DRUGS (14)
  1. RAMIPRIL. [Concomitant]
     Active Substance: RAMIPRIL
     Indication: CARDIAC FAILURE CHRONIC
     Dosage: 1.25 MG, DAILY
     Route: 048
  2. OXYCONTIN [Suspect]
     Active Substance: OXYCODONE HYDROCHLORIDE
     Indication: LYMPHADENECTOMY
     Dosage: UNKNOWN
     Route: 048
  3. LISINOPRIL. [Concomitant]
     Active Substance: LISINOPRIL
     Indication: CARDIAC FAILURE CHRONIC
     Dosage: 2.5 MG, DAILY
     Route: 048
  4. BUMEX [Concomitant]
     Active Substance: BUMETANIDE
     Indication: CARDIAC FAILURE CHRONIC
     Dosage: 2 MG, DAILY
     Route: 048
  5. OXYCONTIN [Suspect]
     Active Substance: OXYCODONE HYDROCHLORIDE
     Indication: BACK PAIN
  6. BUMETANIDE. [Concomitant]
     Active Substance: BUMETANIDE
     Indication: CARDIAC FAILURE CHRONIC
     Dosage: 2 MG, BID PRN
     Route: 048
  7. POTASSIUM CHLORIDE. [Concomitant]
     Active Substance: POTASSIUM CHLORIDE
     Indication: HYPOKALAEMIA
     Dosage: 40 MEQ, BID
     Route: 048
  8. LASIX [Concomitant]
     Active Substance: FUROSEMIDE
     Indication: CARDIAC FAILURE CHRONIC
     Dosage: UNKNOWN
     Route: 048
  9. COENZYME Q10 [Concomitant]
     Active Substance: DIETARY SUPPLEMENT\UBIDECARENONE
     Indication: PRODUCT USED FOR UNKNOWN INDICATION
     Dosage: 100 MG, DAILY
     Route: 048
  10. METOPROLOL. [Concomitant]
     Active Substance: METOPROLOL
     Indication: CARDIAC FAILURE CHRONIC
     Dosage: 12.5 MG, DAILY
     Route: 048
  11. CLONAZEPAM. [Concomitant]
     Active Substance: CLONAZEPAM
     Indication: ANXIETY
     Dosage: 0.5 MG, BID
     Route: 048
  12. OXYCONTIN [Suspect]
     Active Substance: OXYCODONE HYDROCHLORIDE
     Indication: BACK INJURY
  13. ALPRAZOLAM. [Concomitant]
     Active Substance: ALPRAZOLAM
     Indication: ANXIETY
  14. ALPRAZOLAM. [Concomitant]
     Active Substance: ALPRAZOLAM
     Indication: DEPRESSION

REACTIONS (50)
  - Pneumonia [Unknown]
  - Cardiorenal syndrome [Unknown]
  - Dysuria [Unknown]
  - Deep vein thrombosis [Unknown]
  - Extrasystoles [Unknown]
  - Drug detoxification [Unknown]
  - Cardiac failure [Fatal]
  - Oxygen therapy [Unknown]
  - Cardiac failure acute [Unknown]
  - Tachypnoea [Unknown]
  - Malaise [Unknown]
  - Cholelithiasis [Unknown]
  - Drug dependence [Unknown]
  - Cardiac ventricular thrombosis [Fatal]
  - Thrombosis [Unknown]
  - Tricuspid valve incompetence [Unknown]
  - Asthenia [Unknown]
  - Pulmonary embolism [Fatal]
  - Pulmonary hypertension [Fatal]
  - Swelling [Unknown]
  - Dyspnoea [Unknown]
  - Insomnia [Unknown]
  - Fatigue [Unknown]
  - Oedema peripheral [Unknown]
  - Coronary artery thrombosis [Unknown]
  - Suicide attempt [Unknown]
  - Haemorrhagic diathesis [Unknown]
  - Cardiac disorder [Unknown]
  - Peripheral swelling [Unknown]
  - Orthopnoea [Unknown]
  - Acute kidney injury [Unknown]
  - Renal failure [Unknown]
  - Anxiety [Unknown]
  - Sinus tachycardia [Unknown]
  - Palpitations [Unknown]
  - Increased tendency to bruise [Unknown]
  - Cardiac failure congestive [Unknown]
  - Pain [Unknown]
  - Respiratory failure [Unknown]
  - Impaired work ability [Unknown]
  - Ejection fraction decreased [Unknown]
  - Overdose [None]
  - Cardiomyopathy [Unknown]
  - Substance abuse [Unknown]
  - Hypoxia [Unknown]
  - Cardiac failure chronic [Unknown]
  - Oedema [Unknown]
  - Tobacco abuse [Unknown]
  - Chills [Unknown]
  - Pyrexia [Unknown]

NARRATIVE: CASE EVENT DATE: 20180523
